FAERS Safety Report 6075691-2 (Version None)
Quarter: 2009Q1

REPORT INFORMATION
  Report Type: 
  Country: None (occurrence: None)
  Receive Date: 20090212
  Receipt Date: 20090203
  Transmission Date: 20090719
  Serious: Yes (Hospitalization)
  Sender: FDA-Public Use
  Company Number: JP-MERCK-0901USA03791

PATIENT
  Age: 83 Year
  Sex: Female

DRUGS (4)
  1. FOSAMAX [Suspect]
     Indication: OSTEOPOROSIS
     Route: 048
     Dates: start: 20070703
  2. ARTZ DISPO [Concomitant]
     Indication: OSTEOARTHRITIS
     Route: 065
     Dates: start: 20050115
  3. ARTZ DISPO [Concomitant]
     Indication: PERIARTHRITIS
     Route: 065
     Dates: start: 20050115
  4. DIBCALSOR [Concomitant]
     Indication: LUMBAR SPINAL STENOSIS
     Route: 051
     Dates: start: 20061003

REACTIONS (1)
  - CLAVICLE FRACTURE [None]
